FAERS Safety Report 9832819 (Version 1)
Quarter: 2014Q1

REPORT INFORMATION
  Report Type: Spontaneous
  Country: FI (occurrence: FI)
  Receive Date: 20140121
  Receipt Date: 20140121
  Transmission Date: 20141002
  Serious: Yes (Other)
  Sender: FDA-Public Use
  Company Number: FI-GLAXOSMITHKLINE-B0961644A

PATIENT
  Age: 50 Year
  Sex: Female

DRUGS (4)
  1. FLIXOTIDE [Suspect]
     Indication: ASTHMA
     Route: 055
  2. ALVESCO [Suspect]
     Indication: ASTHMA
     Dosage: 160MCG PER DAY
     Route: 055
     Dates: end: 20131201
  3. SEROXAT [Concomitant]
     Indication: DEPRESSION
     Dosage: 30MG PER DAY
     Route: 048
     Dates: start: 2002
  4. KALCIPOS [Concomitant]
     Dosage: 500MG PER DAY
     Route: 048

REACTIONS (1)
  - Depression [Not Recovered/Not Resolved]
